FAERS Safety Report 16297221 (Version 17)
Quarter: 2020Q2

REPORT INFORMATION
  Report Type: Report from Study
  Country: CN (occurrence: CN)
  Receive Date: 20190510
  Receipt Date: 20200427
  Transmission Date: 20200713
  Serious: Yes (Death, Hospitalization)
  Sender: FDA-Public Use
  Company Number: CN-ROCHE-2315132

PATIENT
  Age: 54 Year
  Sex: Female
  Weight: 45 kg

DRUGS (53)
  1. CALTRATE WITH VITAMIN D [Concomitant]
     Active Substance: CALCIUM CARBONATE\CHOLECALCIFEROL
     Dosage: VITAMIN D600 TABLETS
     Route: 065
     Dates: start: 20190408, end: 20190506
  2. DIPHENHYDRAMINE. [Concomitant]
     Active Substance: DIPHENHYDRAMINE
     Indication: PROPHYLAXIS
     Route: 065
     Dates: start: 20190322, end: 20190322
  3. FENTANYL TRANSDERMAL SYSTEM [Concomitant]
     Active Substance: FENTANYL
     Route: 065
     Dates: start: 20190326, end: 20190416
  4. INSULIN [Concomitant]
     Active Substance: INSULIN NOS
     Route: 065
     Dates: start: 20190424, end: 20190430
  5. INSULIN [Concomitant]
     Active Substance: INSULIN NOS
     Route: 065
     Dates: start: 20190506, end: 20190506
  6. NIFEDIPINE. [Concomitant]
     Active Substance: NIFEDIPINE
     Route: 065
     Dates: start: 20190419, end: 20190419
  7. RANITIDINE. [Concomitant]
     Active Substance: RANITIDINE
     Route: 065
     Dates: start: 20190426, end: 20190426
  8. PREGABALIN. [Concomitant]
     Active Substance: PREGABALIN
     Route: 065
     Dates: start: 20190426, end: 20190506
  9. ZOLEDRONIC ACID [Concomitant]
     Active Substance: ZOLEDRONIC ACID
     Route: 065
     Dates: start: 20190301, end: 20190301
  10. DEXAMETHASONE. [Concomitant]
     Active Substance: DEXAMETHASONE
     Dosage: POST RADIOTHERAPY DEHYDRATION
     Route: 065
     Dates: start: 20190326, end: 20190327
  11. DEXAMETHASONE ACETATE [Concomitant]
     Active Substance: DEXAMETHASONE ACETATE
     Route: 065
     Dates: start: 20190505, end: 20190505
  12. MANNITOL. [Concomitant]
     Active Substance: MANNITOL
     Dosage: POST RADIOTHERAPY DEHYDRATION
     Route: 065
     Dates: start: 20190326, end: 20190430
  13. OXIRACETAM [Concomitant]
     Active Substance: OXIRACETAM
     Dosage: TROPHIC NERVE
     Route: 065
     Dates: start: 20190330, end: 20190506
  14. RANITIDINE. [Concomitant]
     Active Substance: RANITIDINE
     Route: 065
     Dates: start: 20190505, end: 20190505
  15. RANITIDINE. [Concomitant]
     Active Substance: RANITIDINE
     Dosage: POST RADIOTHERAPY DEHYDRATION
     Route: 065
     Dates: start: 20190429, end: 20190429
  16. TRAMADOL HYDROCHLORIDE. [Concomitant]
     Active Substance: TRAMADOL HYDROCHLORIDE
     Indication: ANALGESIC THERAPY
     Route: 065
     Dates: start: 20190320, end: 20190320
  17. CELECOXIB. [Concomitant]
     Active Substance: CELECOXIB
     Route: 065
     Dates: start: 20190319, end: 20190325
  18. DEXAMETHASONE ACETATE [Concomitant]
     Active Substance: DEXAMETHASONE ACETATE
     Indication: PROPHYLAXIS
     Route: 065
     Dates: start: 20190419, end: 20190419
  19. INSULIN [Concomitant]
     Active Substance: INSULIN NOS
     Route: 065
     Dates: start: 20190419, end: 20190419
  20. MECOBALAMIN [Concomitant]
     Active Substance: METHYLCOBALAMIN
     Dosage: TROPHIC NERVE
     Route: 065
     Dates: start: 20190330, end: 20190506
  21. COMPOUND DICLOFENAC SODIUM [Concomitant]
     Route: 065
     Dates: start: 20190321, end: 20190321
  22. CALCIUM GLUCONATE. [Concomitant]
     Active Substance: CALCIUM GLUCONATE
     Route: 065
     Dates: start: 20190327, end: 20190427
  23. CELECOXIB. [Concomitant]
     Active Substance: CELECOXIB
     Indication: ANALGESIC THERAPY
     Route: 065
     Dates: start: 20190306, end: 20190314
  24. COMPOUND METHOXYPHENAMINE [Concomitant]
     Route: 065
     Dates: start: 20190430, end: 20190506
  25. DIPHENHYDRAMINE. [Concomitant]
     Active Substance: DIPHENHYDRAMINE
     Route: 065
     Dates: start: 20190426, end: 20190426
  26. INSULIN [Concomitant]
     Active Substance: INSULIN NOS
     Route: 065
     Dates: start: 20190427, end: 20190427
  27. POLYENE PHOSPHATIDYLCHOLINE [Concomitant]
     Active Substance: PHOSPHOLIPID
     Indication: PROPHYLAXIS
     Route: 065
     Dates: start: 20190327, end: 20190424
  28. ATEZOLIZUMAB. [Suspect]
     Active Substance: ATEZOLIZUMAB
     Indication: TRIPLE NEGATIVE BREAST CANCER
     Dosage: MOST RECENT DOSE (840 MG) PRIOR TO SAE: 05/MAY/2019
     Route: 042
     Dates: start: 20190322
  29. CELECOXIB. [Concomitant]
     Active Substance: CELECOXIB
     Route: 065
     Dates: start: 20190303, end: 20190303
  30. CELECOXIB. [Concomitant]
     Active Substance: CELECOXIB
     Route: 065
     Dates: start: 20190426, end: 20190506
  31. CELECOXIB. [Concomitant]
     Active Substance: CELECOXIB
     Route: 065
     Dates: start: 20190326, end: 20190424
  32. DIPHENHYDRAMINE. [Concomitant]
     Active Substance: DIPHENHYDRAMINE
     Route: 065
     Dates: start: 20190419, end: 20190419
  33. L-ORNITHINE L-ASPARTATE [Concomitant]
     Active Substance: ORNITHINE ASPARTATE
     Indication: PROPHYLAXIS
     Route: 065
     Dates: start: 20190327, end: 20190424
  34. RANITIDINE. [Concomitant]
     Active Substance: RANITIDINE
     Dosage: POST RADIOTHERAPY DEHYDRATION
     Route: 065
     Dates: start: 20190326, end: 20190403
  35. DEXAMETHASONE. [Concomitant]
     Active Substance: DEXAMETHASONE
     Indication: PROPHYLAXIS
     Route: 065
     Dates: start: 20190322, end: 20190322
  36. DEXAMETHASONE ACETATE [Concomitant]
     Active Substance: DEXAMETHASONE ACETATE
     Route: 065
     Dates: start: 20190426, end: 20190426
  37. NIFEDIPINE. [Concomitant]
     Active Substance: NIFEDIPINE
     Route: 065
     Dates: start: 20190404, end: 20190404
  38. TRAMADOL HYDROCHLORIDE. [Concomitant]
     Active Substance: TRAMADOL HYDROCHLORIDE
     Route: 065
     Dates: start: 20190425, end: 20190425
  39. ZOLEDRONIC ACID [Concomitant]
     Active Substance: ZOLEDRONIC ACID
     Route: 065
     Dates: start: 20190424, end: 20190424
  40. CELECOXIB. [Concomitant]
     Active Substance: CELECOXIB
     Route: 065
     Dates: start: 20190318, end: 20190318
  41. COMPOUND METHOXYPHENAMINE [Concomitant]
     Route: 065
     Dates: start: 20190402, end: 20190424
  42. DIPHENHYDRAMINE. [Concomitant]
     Active Substance: DIPHENHYDRAMINE
     Route: 065
     Dates: start: 20190405, end: 20190405
  43. INSULIN [Concomitant]
     Active Substance: INSULIN NOS
     Route: 065
     Dates: start: 20190421, end: 20190424
  44. OMEPRAZOLE SODIUM [Concomitant]
     Active Substance: OMEPRAZOLE SODIUM
     Indication: PROPHYLAXIS
     Route: 065
     Dates: start: 20190327, end: 20190506
  45. PREDNISONE ACETATE [Concomitant]
     Active Substance: PREDNISONE ACETATE
     Route: 065
     Dates: start: 20190404, end: 20190505
  46. PACLITAXEL. [Suspect]
     Active Substance: PACLITAXEL
     Indication: TRIPLE NEGATIVE BREAST CANCER
     Dosage: DOSE OF LAST PACLITAXEL ADMINISTERED PRIOR TO SAE ONSET 90 MG/M2 ON 05/MAY/2019
     Route: 042
     Dates: start: 20190322, end: 20190505
  47. CALCIUM GLUCONATE. [Concomitant]
     Active Substance: CALCIUM GLUCONATE
     Route: 065
     Dates: start: 20190408, end: 20190408
  48. DEXAMETHASONE. [Concomitant]
     Active Substance: DEXAMETHASONE
     Dosage: POST-RADIOTHERAPY DEHYDRATION
     Route: 065
     Dates: start: 20190328, end: 20190430
  49. FENTANYL TRANSDERMAL SYSTEM [Concomitant]
     Active Substance: FENTANYL
     Indication: ANALGESIC THERAPY
     Route: 065
     Dates: start: 20190320, end: 20190320
  50. TRAMETES ROBINIOPHILA [Concomitant]
     Indication: PROPHYLAXIS
     Route: 065
     Dates: start: 20190424, end: 20190506
  51. RANITIDINE. [Concomitant]
     Active Substance: RANITIDINE
     Indication: PROPHYLAXIS
     Route: 065
     Dates: start: 20190322, end: 20190322
  52. RANITIDINE. [Concomitant]
     Active Substance: RANITIDINE
     Route: 065
     Dates: start: 20190419, end: 20190419
  53. PREGABALIN. [Concomitant]
     Active Substance: PREGABALIN
     Indication: ANALGESIC THERAPY
     Route: 065
     Dates: start: 20190326, end: 20190424

REACTIONS (1)
  - Cardiac failure [Fatal]

NARRATIVE: CASE EVENT DATE: 20190506
